FAERS Safety Report 5139498-2 (Version None)
Quarter: 2006Q4

REPORT INFORMATION
  Report Type: 
  Country: None (occurrence: None)
  Receive Date: 20061024
  Receipt Date: 20061011
  Transmission Date: 20070319
  Serious: Yes (Other)
  Sender: FDA-Public Use
  Company Number: 2006124412

PATIENT
  Age: 38 Year
  Sex: Female
  Weight: 99.7913 kg

DRUGS (1)
  1. ZITHROMAX [Suspect]
     Indication: PHARYNGOLARYNGEAL PAIN
     Dates: start: 20040401, end: 20040401

REACTIONS (9)
  - BURNING SENSATION [None]
  - DIARRHOEA [None]
  - ERYTHEMA [None]
  - FEELING HOT [None]
  - NAUSEA [None]
  - PRURITUS [None]
  - RASH [None]
  - SKIN ULCER [None]
  - VOMITING [None]
